FAERS Safety Report 4616004-X (Version None)
Quarter: 2005Q1

REPORT INFORMATION
  Report Type: 
  Country: None (occurrence: None)
  Receive Date: 20050323
  Receipt Date: 20050310
  Transmission Date: 20050727
  Serious: Yes (Death)
  Sender: FDA-Public Use
  Company Number: JP-JNJFOC-20030904256

PATIENT
  Sex: Female
  Weight: 56.5 kg

DRUGS (5)
  1. REMICADE [Suspect]
     Indication: CROHN'S DISEASE
     Route: 041
  2. PENTASA [Concomitant]
     Indication: CROHN'S DISEASE
     Dosage: 12T
     Route: 049
     Dates: start: 20030903
  3. ^ENTERON R^ [Concomitant]
     Route: 049
     Dates: start: 20030903
  4. ^DAIKEN CHUTO^ [Concomitant]
     Route: 049
     Dates: start: 20030910
  5. TPN [Concomitant]

REACTIONS (3)
  - INJURY ASPHYXIATION [None]
  - PNEUMONIA ASPIRATION [None]
  - TACHYCARDIA PAROXYSMAL [None]
